FAERS Safety Report 18159319 (Version 2)
Quarter: 2020Q3

REPORT INFORMATION
  Report Type: Report from Study
  Country: None (occurrence: US)
  Receive Date: 20200818
  Receipt Date: 20200908
  Transmission Date: 20201103
  Serious: Yes (Other)
  Sender: FDA-Public Use
  Company Number: US-ABBVIE-20K-163-3440263-00

PATIENT
  Age: 40 Year
  Sex: Female
  Weight: 86.26 kg

DRUGS (2)
  1. HUMIRA [Suspect]
     Active Substance: ADALIMUMAB
     Indication: COLITIS ULCERATIVE
     Route: 058
     Dates: start: 20180814
  2. HUMIRA [Suspect]
     Active Substance: ADALIMUMAB
     Indication: CROHN^S DISEASE
     Route: 058

REACTIONS (18)
  - Lymphadenectomy [Unknown]
  - Weight bearing difficulty [Recovering/Resolving]
  - Adverse food reaction [Unknown]
  - Post-traumatic pain [Unknown]
  - Abdominal pain upper [Recovered/Resolved]
  - Joint swelling [Not Recovered/Not Resolved]
  - Arthralgia [Recovering/Resolving]
  - Limb injury [Not Recovered/Not Resolved]
  - Colitis ulcerative [Recovering/Resolving]
  - Impaired healing [Unknown]
  - Constipation [Recovered/Resolved]
  - Stress [Unknown]
  - Congenital foot malformation [Recovered/Resolved]
  - Immunodeficiency [Not Recovered/Not Resolved]
  - Therapeutic response shortened [Unknown]
  - Nausea [Recovering/Resolving]
  - Malaise [Unknown]
  - Diarrhoea [Recovered/Resolved]

NARRATIVE: CASE EVENT DATE: 201911
